FAERS Safety Report 19451159 (Version 1)
Quarter: 2021Q2

REPORT INFORMATION
  Report Type: Spontaneous
  Country: US (occurrence: US)
  Receive Date: 20210622
  Receipt Date: 20210622
  Transmission Date: 20210717
  Serious: Yes (Other)
  Sender: FDA-Public Use
  Company Number: None

PATIENT
  Age: 68 Year
  Sex: Female
  Weight: 90 kg

DRUGS (8)
  1. XANAX [Concomitant]
     Active Substance: ALPRAZOLAM
  2. CLONIDINE. [Concomitant]
     Active Substance: CLONIDINE
  3. PROLIA [Concomitant]
     Active Substance: DENOSUMAB
  4. GABAPENTIN. [Suspect]
     Active Substance: GABAPENTIN
     Indication: ANXIETY
     Route: 048
     Dates: start: 20200606, end: 20210621
  5. WELLBUTRIN [Concomitant]
     Active Substance: BUPROPION HYDROCHLORIDE
  6. ZOLOFT [Concomitant]
     Active Substance: SERTRALINE HYDROCHLORIDE
  7. NERVOUS SYSTEM SUPPLEMENTS [Concomitant]
  8. LAMOTRIGEN [Concomitant]

REACTIONS (23)
  - Seizure [None]
  - Feeling abnormal [None]
  - Dysgraphia [None]
  - Pain [None]
  - Suicidal ideation [None]
  - Visual impairment [None]
  - Muscular weakness [None]
  - Clumsiness [None]
  - Loss of proprioception [None]
  - Quality of life decreased [None]
  - Cerebrovascular accident [None]
  - Tremor [None]
  - Trigeminal neuralgia [None]
  - Speech disorder [None]
  - Poverty of speech [None]
  - Depression [None]
  - Burning sensation [None]
  - Memory impairment [None]
  - Malaise [None]
  - Anxiety [None]
  - Muscle spasms [None]
  - Fall [None]
  - Ophthalmic migraine [None]

NARRATIVE: CASE EVENT DATE: 20200606
